FAERS Safety Report 17426168 (Version 1)
Quarter: 2020Q1

REPORT INFORMATION
  Report Type: Report from Study
  Country: FR (occurrence: FR)
  Receive Date: 20200217
  Receipt Date: 20200217
  Transmission Date: 20200409
  Serious: Yes (Hospitalization, Other)
  Sender: FDA-Public Use
  Company Number: FR-PFIZER INC-2017545642

PATIENT
  Age: 70 Year
  Sex: Female
  Weight: 43 kg

DRUGS (10)
  1. ELVORINE [Suspect]
     Active Substance: LEUCOVORIN CALCIUM
     Indication: COLORECTAL CANCER METASTATIC
     Dosage: 284 MG, CYCLIC
     Route: 065
     Dates: start: 20170912
  2. FLUOROURACIL. [Suspect]
     Active Substance: FLUOROURACIL
     Indication: COLORECTAL CANCER METASTATIC
     Dosage: 5568 MG, UNK
     Route: 041
     Dates: start: 20170926
  3. BEVACIZUMAB. [Suspect]
     Active Substance: BEVACIZUMAB
     Dosage: 365 MG, UNK
     Route: 042
     Dates: start: 20170926
  4. OXALIPLATIN. [Suspect]
     Active Substance: OXALIPLATIN
     Indication: COLORECTAL CANCER METASTATIC
     Dosage: 147.9 MG, UNK
     Route: 065
     Dates: start: 20170929
  5. FLUOROURACIL. [Suspect]
     Active Substance: FLUOROURACIL
     Dosage: 560 MG, CYCLIC
     Route: 040
     Dates: start: 20171024
  6. IRINOTECAN HCL [Suspect]
     Active Substance: IRINOTECAN HYDROCHLORIDE
     Indication: COLORECTAL CANCER METASTATIC
     Dosage: 260 MG, CYCLIC
     Route: 065
     Dates: start: 20170912, end: 20171024
  7. IRINOTECAN HCL [Suspect]
     Active Substance: IRINOTECAN HYDROCHLORIDE
     Dosage: 215.33 MG, UNK
     Route: 065
     Dates: start: 20170926
  8. ELVORINE [Suspect]
     Active Substance: LEUCOVORIN CALCIUM
     Dosage: 180 MG, UNK
     Route: 065
     Dates: start: 20170926
  9. FLUOROURACIL. [Suspect]
     Active Substance: FLUOROURACIL
     Dosage: 3400 MG, CYCLIC
     Route: 041
     Dates: start: 20171024
  10. BEVACIZUMAB. [Suspect]
     Active Substance: BEVACIZUMAB
     Indication: COLORECTAL CANCER METASTATIC
     Dosage: 240 MG, CYCLIC
     Route: 042
     Dates: start: 20170912, end: 20170926

REACTIONS (6)
  - Vomiting [Recovered/Resolved]
  - Intestinal obstruction [Recovered/Resolved]
  - Abdominal pain [Recovered/Resolved]
  - Pulmonary embolism [Not Recovered/Not Resolved]
  - Epistaxis [Unknown]
  - Constipation [Recovered/Resolved]

NARRATIVE: CASE EVENT DATE: 20171024
